FAERS Safety Report 5611243-3 (Version None)
Quarter: 2008Q1

REPORT INFORMATION
  Report Type: 
  Country: None (occurrence: None)
  Receive Date: 20080201
  Receipt Date: 20080122
  Transmission Date: 20080703
  Serious: Yes (Congenital Anomaly)
  Sender: FDA-Public Use
  Company Number: AU-ABBOTT-08P-008-0435094-00

PATIENT

DRUGS (1)
  1. HUMIRA [Suspect]
     Indication: TRANSMISSION OF DRUG VIA SEMEN
     Route: 064

REACTIONS (1)
  - FOETAL CHROMOSOME ABNORMALITY [None]
